FAERS Safety Report 17510287 (Version 1)
Quarter: 2020Q1

REPORT INFORMATION
  Report Type: Spontaneous
  Country: US (occurrence: US)
  Receive Date: 20200306
  Receipt Date: 20200306
  Transmission Date: 20200409
  Serious: No
  Sender: FDA-Public Use
  Company Number: None

PATIENT
  Age: 62 Year
  Sex: Male

DRUGS (6)
  1. ESZOPICLONE-TAB- [Suspect]
     Active Substance: ESZOPICLONE
     Route: 048
  2. TAMSULOSIN [Concomitant]
     Active Substance: TAMSULOSIN
  3. METHYLPHENIDATE. [Concomitant]
     Active Substance: METHYLPHENIDATE
  4. TOPROL XL [Concomitant]
     Active Substance: METOPROLOL SUCCINATE
  5. ROSUVASTATIN. [Concomitant]
     Active Substance: ROSUVASTATIN
  6. VIIBRYD [Concomitant]
     Active Substance: VILAZODONE HYDROCHLORIDE

REACTIONS (2)
  - Therapeutic product effect decreased [None]
  - Initial insomnia [None]

NARRATIVE: CASE EVENT DATE: 20200301
